FAERS Safety Report 21742287 (Version 1)
Quarter: 2022Q4

REPORT INFORMATION
  Report Type: Spontaneous
  Country: US (occurrence: None)
  Receive Date: 20221216
  Receipt Date: 20221216
  Transmission Date: 20230113
  Serious: No
  Sender: FDA-Public Use
  Company Number: None

PATIENT
  Age: 63 Year
  Sex: Female
  Weight: 127.01 kg

DRUGS (5)
  1. KISQALI [Suspect]
     Active Substance: RIBOCICLIB
     Indication: Breast cancer female
     Dosage: OTHER FREQUENCY : 21DOF28DAYS;?
     Route: 048
  2. COZAAR [Concomitant]
  3. FASLODEX [Concomitant]
  4. HUMULIN R [Concomitant]
  5. METOPROLOL [Concomitant]

REACTIONS (1)
  - Disease progression [None]
